FAERS Safety Report 18677461 (Version 1)
Quarter: 2020Q4

REPORT INFORMATION
  Report Type: Spontaneous
  Country: DE (occurrence: DE)
  Receive Date: 20201229
  Receipt Date: 20201229
  Transmission Date: 20210114
  Serious: Yes (Other)
  Sender: FDA-Public Use
  Company Number: NVSC2020DE337026

PATIENT
  Age: 5 Month
  Sex: Male
  Weight: 2.61 kg

DRUGS (2)
  1. BISOPROLOL [Suspect]
     Active Substance: BISOPROLOL
     Indication: FOETAL EXPOSURE DURING PREGNANCY
     Dosage: MATERNAL DOSE: 2.5 MG, QD (2.5 [MG/D ] 2 SEPARATED DOSES)
     Route: 064
     Dates: start: 20190930, end: 20200705
  2. PRESINOL [Suspect]
     Active Substance: METHYLDOPA
     Indication: FOETAL EXPOSURE DURING PREGNANCY
     Dosage: MATERNAL DOSE: 500 MG, QD (500 [MG/D ] 2 SEPARATED DOSES)
     Route: 064
     Dates: start: 20190930, end: 20200705

REACTIONS (2)
  - Small for dates baby [Recovered/Resolved]
  - Exposure during pregnancy [Unknown]
